FAERS Safety Report 20838524 (Version 1)
Quarter: 2022Q2

REPORT INFORMATION
  Report Type: Spontaneous
  Country: FR (occurrence: FR)
  Receive Date: 20220517
  Receipt Date: 20220517
  Transmission Date: 20220720
  Serious: Yes (Hospitalization)
  Sender: FDA-Public Use
  Company Number: None

PATIENT
  Age: 49 Year
  Sex: Male

DRUGS (5)
  1. ALPRAZOLAM [Suspect]
     Active Substance: ALPRAZOLAM
     Dosage: 3 TO 6 TABLETS OF 0.5 MG PER DAY
     Route: 048
  2. COCAINE [Suspect]
     Active Substance: COCAINE
     Dosage: OCCASIONAL
     Route: 065
  3. HEROIN [Suspect]
     Active Substance: DIAMORPHINE
     Dosage: 1 TO 2 G PER DAY
     Route: 045
     Dates: start: 2015
  4. LORMETAZEPAM [Suspect]
     Active Substance: LORMETAZEPAM
     Dosage: UNK
     Route: 065
  5. TOBACCO LEAF [Suspect]
     Active Substance: TOBACCO LEAF
     Dosage: 10 TO 15 ROLLED CIGARETTES PER DAY
     Route: 055

REACTIONS (3)
  - Drug abuse [Not Recovered/Not Resolved]
  - Disturbance in attention [Recovering/Resolving]
  - Withdrawal syndrome [Recovered/Resolved]

NARRATIVE: CASE EVENT DATE: 20210601
